FAERS Safety Report 5982417-7 (Version None)
Quarter: 2008Q4

REPORT INFORMATION
  Report Type: 
  Country: None (occurrence: None)
  Receive Date: 20081208
  Receipt Date: 20081202
  Transmission Date: 20090506
  Serious: Yes (Other)
  Sender: FDA-Public Use
  Company Number: US-SANOFI-SYNTHELABO-A03200804818

PATIENT
  Sex: Female

DRUGS (6)
  1. SEROQUEL [Concomitant]
     Indication: DRUG USE FOR UNKNOWN INDICATION
     Dosage: UNK
     Route: 065
  2. TRAZODONE HCL [Concomitant]
     Indication: DRUG USE FOR UNKNOWN INDICATION
     Dosage: UNK
     Route: 065
  3. NEURONTIN [Concomitant]
     Indication: DRUG USE FOR UNKNOWN INDICATION
     Dosage: UNK
     Route: 065
  4. DEPAKOTE [Concomitant]
     Indication: DRUG USE FOR UNKNOWN INDICATION
     Dosage: UNK
     Route: 065
  5. AMBIEN [Suspect]
     Indication: INSOMNIA
     Route: 048
     Dates: start: 20080912
  6. AMBIEN [Suspect]
     Dosage: UNK
     Route: 048
     Dates: start: 20081101

REACTIONS (5)
  - AMNESIA [None]
  - DRUG DEPENDENCE [None]
  - SLEEP-RELATED EATING DISORDER [None]
  - URTICARIA [None]
  - WEIGHT INCREASED [None]
